FAERS Safety Report 7125544-3 (Version None)
Quarter: 2010Q4

REPORT INFORMATION
  Report Type: 
  Country: None (occurrence: None)
  Receive Date: 20101129
  Receipt Date: 20101124
  Transmission Date: 20110411
  Serious: Yes (Death)
  Sender: FDA-Public Use
  Company Number: TN-SANOFI-AVENTIS-2010SA071821

PATIENT
  Age: 67 Year
  Sex: Male

DRUGS (4)
  1. PLAVIX [Suspect]
     Indication: ISCHAEMIC STROKE
     Route: 048
     Dates: start: 20100216, end: 20100731
  2. FAMODINE [Concomitant]
     Route: 048
     Dates: end: 20100731
  3. GLYBURIDE [Concomitant]
     Route: 048
     Dates: end: 20100731
  4. BETAHISTINE [Concomitant]
     Route: 048
     Dates: end: 20100731

REACTIONS (1)
  - ROAD TRAFFIC ACCIDENT [None]
